FAERS Safety Report 6562457-X (Version None)
Quarter: 2010Q1

REPORT INFORMATION
  Report Type: 
  Country: None (occurrence: None)
  Receive Date: 20100130
  Receipt Date: 20091110
  Transmission Date: 20100710
  Serious: No
  Sender: FDA-Public Use
  Company Number: US-ABBOTT-09P-163-0607771-00

PATIENT
  Sex: Female
  Weight: 55.388 kg

DRUGS (2)
  1. HUMIRA [Suspect]
     Indication: RHEUMATOID ARTHRITIS
     Dates: start: 20090901
  2. PREDNISONE [Concomitant]
     Indication: RHEUMATOID ARTHRITIS
     Dosage: 8.5MG DURING THE DAY   4.5MG AT NIGHT

REACTIONS (2)
  - STRABISMUS [None]
  - VISION BLURRED [None]
